FAERS Safety Report 26097221 (Version 2)
Quarter: 2025Q4

REPORT INFORMATION
  Report Type: Spontaneous
  Country: US (occurrence: US)
  Receive Date: 20251127
  Receipt Date: 20251211
  Transmission Date: 20260118
  Serious: Yes (Hospitalization)
  Sender: TEVA
  Company Number: US-TEVA-VS-3395801

PATIENT
  Age: 14 Year
  Sex: Female

DRUGS (7)
  1. BENZTROPINE [Suspect]
     Active Substance: BENZTROPINE
     Indication: Product used for unknown indication
     Route: 048
  2. SERTRALINE [Suspect]
     Active Substance: SERTRALINE HYDROCHLORIDE
     Indication: Product used for unknown indication
     Route: 048
  3. ARIPIPRAZOLE [Concomitant]
     Active Substance: ARIPIPRAZOLE
     Indication: Product used for unknown indication
     Route: 048
  4. PHYSOSTIGMINE [Suspect]
     Active Substance: PHYSOSTIGMINE
     Indication: Toxicity to various agents
     Route: 042
  5. PHYSOSTIGMINE [Suspect]
     Active Substance: PHYSOSTIGMINE
     Indication: Toxicity to various agents
     Route: 040
  6. PHYSOSTIGMINE [Suspect]
     Active Substance: PHYSOSTIGMINE
     Indication: Toxicity to various agents
     Dosage: TITRATED TO A MAX OF 1.5?MG/HR.
     Route: 042
  7. PHYSOSTIGMINE [Suspect]
     Active Substance: PHYSOSTIGMINE
     Indication: Toxicity to various agents
     Route: 042

REACTIONS (8)
  - Toxicity to various agents [Recovering/Resolving]
  - Delirium [Recovering/Resolving]
  - Mydriasis [Recovering/Resolving]
  - Tachycardia [Recovering/Resolving]
  - Bradycardia [Unknown]
  - Mucosal dryness [Recovering/Resolving]
  - Hypertension [Recovering/Resolving]
  - Agitation [Recovering/Resolving]
